FAERS Safety Report 23095040 (Version 1)
Quarter: 2023Q4

REPORT INFORMATION
  Report Type: Report from Study
  Country: US (occurrence: US)
  Receive Date: 20231023
  Receipt Date: 20231023
  Transmission Date: 20240109
  Serious: Yes (Hospitalization, Other)
  Sender: FDA-Public Use
  Company Number: US-JNJFOC-20231038778

PATIENT
  Age: 56 Year
  Sex: Male

DRUGS (1)
  1. BORTEZOMIB [Suspect]
     Active Substance: BORTEZOMIB
     Indication: Plasma cell myeloma
     Dosage: UNK
     Route: 065

REACTIONS (6)
  - Blood lactic acid increased [Unknown]
  - Leukocytosis [Unknown]
  - Atrial fibrillation [Unknown]
  - Sepsis [Unknown]
  - Hypotension [Unknown]
  - Hyperkalaemia [Unknown]
